FAERS Safety Report 4513996-4 (Version None)
Quarter: 2004Q4

REPORT INFORMATION
  Report Type: 
  Country: None (occurrence: None)
  Receive Date: 20041124
  Receipt Date: 20041116
  Transmission Date: 20050328
  Serious: Yes (Disabling)
  Sender: FDA-Public Use
  Company Number: HQWYE506318NOV04

PATIENT
  Age: 84 Year
  Sex: Female
  Weight: 63.56 kg

DRUGS (8)
  1. PROTONIX [Suspect]
     Indication: ABDOMINAL DISCOMFORT
     Dosage: 40 MGH, 1X PER 1 DAY, ORAL
     Route: 048
     Dates: start: 20020101
  2. PROTONIX [Suspect]
     Indication: ABDOMINAL PAIN UPPER
     Dosage: 40 MGH, 1X PER 1 DAY, ORAL
     Route: 048
     Dates: start: 20020101
  3. LISINOPRIL [Concomitant]
  4. METOPROLOL TARTRATE [Concomitant]
  5. PAXIL [Concomitant]
  6. PLAVIX [Concomitant]
  7. ISORBID (ISOSORBIDE DINITRATE) [Concomitant]
  8. NORVASC [Concomitant]

REACTIONS (5)
  - ACTIVITIES OF DAILY LIVING IMPAIRED [None]
  - ASTHENIA [None]
  - DEMENTIA ALZHEIMER'S TYPE [None]
  - DYSGRAPHIA [None]
  - MOTOR DYSFUNCTION [None]
